FAERS Safety Report 5346933-3 (Version None)
Quarter: 2007Q2

REPORT INFORMATION
  Report Type: 
  Country: None (occurrence: None)
  Receive Date: 20070430
  Receipt Date: 20070221
  Transmission Date: 20071010
  Serious: No
  Sender: FDA-Public Use
  Company Number: 261056

PATIENT
  Age: 77 Year
  Sex: Female
  Weight: 74.8 kg

DRUGS (3)
  1. LEVEMIR (INSULIN DETEMIR) [Suspect]
     Indication: INSULIN-REQUIRING TYPE II DIABETES MELLITUS
  2. NOVOLIN N          (INSULIN HUMAN) [Suspect]
     Indication: INSULIN-REQUIRING TYPE II DIABETES MELLITUS
     Dosage: 65 IU, QD, SUBCUTANEOUS
     Route: 058
     Dates: start: 20060101, end: 20060101
  3. NOVOLIN R [Suspect]
     Indication: INSULIN-REQUIRING TYPE II DIABETES MELLITUS
     Dosage: SLIDING SCALE, SUBCUTANEOUS
     Route: 058
     Dates: start: 20060101, end: 20060101

REACTIONS (1)
  - MYALGIA [None]
